FAERS Safety Report 9243126 (Version 1)
Quarter: 2013Q2

REPORT INFORMATION
  Report Type: Spontaneous
  Country: DE (occurrence: DE)
  Receive Date: 20130419
  Receipt Date: 20130419
  Transmission Date: 20140414
  Serious: Yes (Hospitalization)
  Sender: FDA-Public Use
  Company Number: DE-ASTRAZENECA-2013SE25091

PATIENT
  Age: 62 Year
  Sex: Female

DRUGS (11)
  1. SEROQUEL PROLONG [Suspect]
     Route: 048
     Dates: start: 20120824
  2. RISPERDAL [Interacting]
     Route: 048
     Dates: start: 20121101, end: 20121205
  3. RISPERDAL [Interacting]
     Route: 048
     Dates: start: 20121206, end: 20121227
  4. RISPERDAL [Interacting]
     Route: 048
     Dates: start: 20121228
  5. QUILONUM RETARD [Suspect]
     Dosage: 675-900 MILLIGRAMS DAILY
     Route: 048
     Dates: start: 20120101
  6. MADOPAR [Concomitant]
     Dosage: 100/25 MILLIGRAMS DAILY
     Route: 048
     Dates: start: 20120901
  7. VALDOXAN [Concomitant]
     Route: 048
     Dates: start: 20120824
  8. RAMIPRIL [Concomitant]
     Route: 048
     Dates: start: 20110101
  9. METOPROGAMMA [Concomitant]
     Route: 048
     Dates: start: 20110101
  10. SIMVASTATIN [Concomitant]
     Route: 048
     Dates: start: 20110101
  11. L-THYROXIN [Concomitant]
     Route: 048
     Dates: start: 20120902

REACTIONS (2)
  - Drug interaction [Unknown]
  - Akathisia [Recovered/Resolved]
